FAERS Safety Report 11402633 (Version 1)
Quarter: 2015Q3

REPORT INFORMATION
  Report Type: Spontaneous
  Country: US (occurrence: US)
  Receive Date: 20150821
  Receipt Date: 20150821
  Transmission Date: 20151125
  Serious: No
  Sender: FDA-Public Use
  Company Number: US-ROCHE-1348121

PATIENT
  Age: 57 Year
  Sex: Male

DRUGS (6)
  1. COPEGUS [Suspect]
     Active Substance: RIBAVIRIN
     Indication: CHRONIC HEPATITIS C
     Dosage: DIVIDED DOSES
     Route: 065
  2. COPEGUS [Suspect]
     Active Substance: RIBAVIRIN
     Route: 065
  3. COPEGUS [Suspect]
     Active Substance: RIBAVIRIN
     Route: 065
  4. PEGASYS [Suspect]
     Active Substance: PEGINTERFERON ALFA-2A
     Indication: CHRONIC HEPATITIS C
     Dosage: PROCLICK AUTOINJECTOR
     Route: 058
     Dates: start: 20130501
  5. AMOXICILLIN. [Concomitant]
     Active Substance: AMOXICILLIN
  6. CARDIVOL [Concomitant]

REACTIONS (5)
  - Epistaxis [Not Recovered/Not Resolved]
  - Dyspnoea [Unknown]
  - Blood count abnormal [Unknown]
  - Rhinorrhoea [Not Recovered/Not Resolved]
  - Blood pressure decreased [Unknown]

NARRATIVE: CASE EVENT DATE: 201310
